FAERS Safety Report 17182107 (Version 1)
Quarter: 2019Q4

REPORT INFORMATION
  Report Type: Spontaneous
  Country: US (occurrence: US)
  Receive Date: 20191220
  Receipt Date: 20191220
  Transmission Date: 20200122
  Serious: Yes (Other)
  Sender: FDA-Public Use
  Company Number: US-HIKMA PHARMACEUTICALS USA INC.-US-H14001-19-06158

PATIENT

DRUGS (1)
  1. INFUMORPH [Suspect]
     Active Substance: MORPHINE SULFATE
     Indication: SPINAL PAIN
     Route: 037
     Dates: start: 20190916

REACTIONS (1)
  - Device related infection [Recovered/Resolved with Sequelae]
